FAERS Safety Report 19769295 (Version 1)
Quarter: 2021Q3

REPORT INFORMATION
  Report Type: Spontaneous
  Country: IT (occurrence: IT)
  Receive Date: 20210831
  Receipt Date: 20210831
  Transmission Date: 20211014
  Serious: Yes (Hospitalization)
  Sender: FDA-Public Use
  Company Number: IT-TEVA-2021-IT-1946662

PATIENT
  Age: 46 Year
  Sex: Male
  Weight: 106 kg

DRUGS (1)
  1. CLOZAPINE. [Suspect]
     Active Substance: CLOZAPINE
     Indication: SCHIZOPHRENIA
     Dosage: 250MILLIGRAM
     Route: 048
     Dates: start: 20210505

REACTIONS (1)
  - Pericardial effusion [Recovering/Resolving]

NARRATIVE: CASE EVENT DATE: 20210729
